FAERS Safety Report 23877276 (Version 1)
Quarter: 2024Q2

REPORT INFORMATION
  Report Type: Spontaneous
  Country: IN (occurrence: IN)
  Receive Date: 20240521
  Receipt Date: 20240521
  Transmission Date: 20240716
  Serious: Yes (Other)
  Sender: FDA-Public Use
  Company Number: IN-STRIDES ARCOLAB LIMITED-2024SP005783

PATIENT
  Age: 37 Year
  Sex: Female

DRUGS (2)
  1. CYPROHEPTADINE [Suspect]
     Active Substance: CYPROHEPTADINE
     Indication: Product used for unknown indication
     Dosage: 4 MILLIGRAM, BID (TABLET)(RECEIVED FOR 8 YEARS; REPETITIVE ATTEMPTS TO DISCONTINUE)
     Route: 065
  2. DEXAMETHASONE [Suspect]
     Active Substance: DEXAMETHASONE
     Indication: Product used for unknown indication
     Dosage: 0.5 MILLIGRAM, BID (RECEIVED FOR 8 YEARS; REPETITIVE ATTEMPTS TO DISCONTINUE)
     Route: 065

REACTIONS (6)
  - Withdrawal syndrome [Unknown]
  - Sleep disorder [Unknown]
  - Pain [Unknown]
  - Drug abuse [Unknown]
  - Diarrhoea [Unknown]
  - Restlessness [Unknown]
